FAERS Safety Report 21886908 (Version 2)
Quarter: 2023Q2

REPORT INFORMATION
  Report Type: Report from Study
  Country: US (occurrence: US)
  Receive Date: 20230119
  Receipt Date: 20230518
  Transmission Date: 20230722
  Serious: Yes (Other)
  Sender: FDA-Public Use
  Company Number: US-OTSUKA-2023_000427

PATIENT
  Age: 44 Year
  Sex: Female
  Weight: 55.34 kg

DRUGS (3)
  1. DEXTROMETHORPHAN HYDROBROMIDE\QUINIDINE SULFATE [Suspect]
     Active Substance: DEXTROMETHORPHAN HYDROBROMIDE\QUINIDINE SULFATE
     Indication: Mental impairment
     Dosage: 1 DF (20-10MG) TWICE
     Route: 048
  2. DEXTROMETHORPHAN HYDROBROMIDE\QUINIDINE SULFATE [Suspect]
     Active Substance: DEXTROMETHORPHAN HYDROBROMIDE\QUINIDINE SULFATE
     Dosage: 1 DF (20-10MG) TWICE A DAY BY MOUTH ONE IN THE MORNING AFTER BREAKFAST AND ONE AT 5.
     Route: 048
     Dates: start: 20230103
  3. DEXTROMETHORPHAN HYDROBROMIDE\QUINIDINE SULFATE [Suspect]
     Active Substance: DEXTROMETHORPHAN HYDROBROMIDE\QUINIDINE SULFATE
     Dosage: 1 DF (20-10 MG), QD
     Route: 048

REACTIONS (5)
  - Withdrawal syndrome [Unknown]
  - Intentional underdose [Unknown]
  - Inability to afford medication [Unknown]
  - Product use in unapproved indication [Unknown]
  - Therapy interrupted [Unknown]

NARRATIVE: CASE EVENT DATE: 20230103
